FAERS Safety Report 9467325 (Version 1)
Quarter: 2013Q3

REPORT INFORMATION
  Report Type: Spontaneous
  Country: JP (occurrence: JP)
  Receive Date: 20130821
  Receipt Date: 20130821
  Transmission Date: 20140515
  Serious: Yes (Other)
  Sender: FDA-Public Use
  Company Number: JP-PFIZER INC-2013238770

PATIENT
  Age: 60 Year
  Sex: Female

DRUGS (1)
  1. CELECOX [Suspect]
     Dosage: UNK
     Route: 048
     Dates: start: 201205, end: 201205

REACTIONS (1)
  - Drug-induced liver injury [Unknown]
